FAERS Safety Report 7626228-5 (Version None)
Quarter: 2011Q3

REPORT INFORMATION
  Report Type: 
  Country: None (occurrence: None)
  Receive Date: 20110721
  Receipt Date: 20110621
  Transmission Date: 20111222
  Serious: Yes (Other)
  Sender: FDA-Public Use
  Company Number: US-JNJFOC-20110704507

PATIENT
  Age: 41 Year
  Sex: Male

DRUGS (11)
  1. VIAGRA [Suspect]
     Indication: PRODUCT USED FOR UNKNOWN INDICATION
  2. INDOMETHACIN [Suspect]
     Indication: PRODUCT USED FOR UNKNOWN INDICATION
  3. AMBIEN [Suspect]
     Indication: PRODUCT USED FOR UNKNOWN INDICATION
  4. KLONOPIN [Suspect]
     Indication: PRODUCT USED FOR UNKNOWN INDICATION
  5. XANAX [Suspect]
     Indication: PRODUCT USED FOR UNKNOWN INDICATION
  6. NICOTROL [Suspect]
     Route: 055
  7. LIPITOR [Suspect]
     Indication: PRODUCT USED FOR UNKNOWN INDICATION
  8. FLEXERIL [Suspect]
     Indication: PRODUCT USED FOR UNKNOWN INDICATION
     Route: 065
  9. NICOTROL [Suspect]
     Indication: PRODUCT USED FOR UNKNOWN INDICATION
     Route: 055
  10. AMITRIPTYLINE HCL [Suspect]
     Indication: PRODUCT USED FOR UNKNOWN INDICATION
  11. SOMA [Suspect]
     Indication: PRODUCT USED FOR UNKNOWN INDICATION

REACTIONS (3)
  - OESOPHAGEAL OPERATION [None]
  - ANKLE FRACTURE [None]
  - CONVULSION [None]
